FAERS Safety Report 5225601-2 (Version None)
Quarter: 2007Q1

REPORT INFORMATION
  Report Type: 
  Country: None (occurrence: None)
  Receive Date: 20061201
  Receipt Date: 20061009
  Transmission Date: 20070707
  Serious: Yes (Other)
  Sender: FDA-Public Use
  Company Number: US200608004599

PATIENT
  Age: 44 Year
  Sex: Male

DRUGS (6)
  1. CYMBALTA [Suspect]
     Indication: DEPRESSION
     Dosage: 20 MG, 2/D,  UNK
     Dates: start: 20060701
  2. DIAZEPAM [Concomitant]
  3. SEROQUEL [Concomitant]
  4. CLONIDINE [Concomitant]
  5. CYCLOBENZAPRINE HCL [Concomitant]
  6. AMBIEN [Concomitant]

REACTIONS (16)
  - ANXIETY [None]
  - BLOOD PRESSURE ABNORMAL [None]
  - CARDIAC DISORDER [None]
  - CONSTIPATION [None]
  - DECREASED APPETITE [None]
  - DIZZINESS [None]
  - DRY MOUTH [None]
  - EJACULATION DISORDER [None]
  - FATIGUE [None]
  - FEELING HOT AND COLD [None]
  - HEADACHE [None]
  - HYPERHIDROSIS [None]
  - LIBIDO DECREASED [None]
  - PANIC ATTACK [None]
  - SUICIDE ATTEMPT [None]
  - WEIGHT DECREASED [None]
